FAERS Safety Report 9338991 (Version 1)
Quarter: 2013Q2

REPORT INFORMATION
  Report Type: Spontaneous
  Country: GB (occurrence: GB)
  Receive Date: 20130610
  Receipt Date: 20130610
  Transmission Date: 20140414
  Serious: Yes (Hospitalization, Other)
  Sender: FDA-Public Use
  Company Number: GB-BAYER-2013-068222

PATIENT
  Age: 71 Year
  Sex: Male

DRUGS (1)
  1. CIPROFLOXACIN [Suspect]
     Indication: OTITIS EXTERNA
     Dosage: UNK
     Route: 048

REACTIONS (5)
  - Drug ineffective [None]
  - VIIth nerve paralysis [Recovered/Resolved]
  - Weight decreased [None]
  - Fatigue [None]
  - Renal impairment [None]
